FAERS Safety Report 24105329 (Version 3)
Quarter: 2024Q4

REPORT INFORMATION
  Report Type: Report from Study
  Country: US (occurrence: US)
  Receive Date: 20240717
  Receipt Date: 20241111
  Transmission Date: 20250115
  Serious: Yes (Hospitalization)
  Sender: PARATEK PHARMACEUTICALS
  Company Number: US-PARATEK PHARMACEUTICALS, INC.-2024PTK00561

PATIENT
  Age: 66 Year
  Sex: Male

DRUGS (8)
  1. NUZYRA [Suspect]
     Active Substance: OMADACYCLINE
     Dosage: 150 MG, 1X/DAY AFTER MEALS
     Route: 048
     Dates: start: 20240307, end: 2024
  2. NUZYRA [Suspect]
     Active Substance: OMADACYCLINE
     Dosage: 150 MG, 1X/DAY AFTER MEALS
     Route: 048
     Dates: start: 2024
  3. FENTANYL [Concomitant]
     Active Substance: FENTANYL
     Route: 062
  4. DILAUDID [Concomitant]
     Active Substance: HYDROMORPHONE HYDROCHLORIDE
     Route: 048
  5. PLAVIX [Concomitant]
     Active Substance: CLOPIDOGREL BISULFATE
     Route: 048
  6. LOVENOX [Concomitant]
     Active Substance: ENOXAPARIN SODIUM
  7. BUMETANIDE [Concomitant]
     Active Substance: BUMETANIDE
     Route: 048
  8. GABAPENTIN [Concomitant]
     Active Substance: GABAPENTIN
     Route: 048

REACTIONS (4)
  - Infection [Unknown]
  - Localised infection [Unknown]
  - Leg amputation [Unknown]
  - Labelled drug-food interaction medication error [Unknown]

NARRATIVE: CASE EVENT DATE: 20240101
